FAERS Safety Report 24940617 (Version 1)
Quarter: 2025Q1

REPORT INFORMATION
  Report Type: Spontaneous
  Country: US (occurrence: US)
  Receive Date: 20250207
  Receipt Date: 20250207
  Transmission Date: 20250409
  Serious: No
  Sender: ABBVIE
  Company Number: US-ABBVIE-6123188

PATIENT
  Sex: Female

DRUGS (1)
  1. BOTOX [Suspect]
     Active Substance: ONABOTULINUMTOXINA
     Indication: Migraine
     Route: 065

REACTIONS (7)
  - Dizziness [Unknown]
  - Migraine [Unknown]
  - Eyelid ptosis [Unknown]
  - Hypotension [Unknown]
  - Decreased appetite [Unknown]
  - Weight decreased [Unknown]
  - Therapeutic product effect incomplete [Unknown]
